FAERS Safety Report 8835723 (Version 6)
Quarter: 2014Q2

REPORT INFORMATION
  Report Type: Report from Study
  Country: TR (occurrence: TR)
  Receive Date: 20121011
  Receipt Date: 20140403
  Transmission Date: 20141212
  Serious: Yes (Hospitalization)
  Sender: FDA-Public Use
  Company Number: PHHO2012TR014604

PATIENT
  Sex: 0

DRUGS (8)
  1. AMN107 [Suspect]
     Indication: CHRONIC MYELOID LEUKAEMIA
     Dosage: 300 MG, BID
     Route: 048
     Dates: start: 20120524, end: 20140318
  2. AMN107 [Suspect]
     Dosage: 300 MG, BID
     Route: 048
     Dates: start: 20140319
  3. COVERSYL [Concomitant]
     Indication: CORONARY ARTERY DISEASE
     Dosage: 5 MG, UNK
     Route: 048
     Dates: start: 2010
  4. LEVATROM [Concomitant]
     Indication: HYPOTHYROIDISM
     Dosage: 100 MG, UNK
     Route: 048
     Dates: start: 2001
  5. VASTAREL MR [Concomitant]
     Indication: CARDIOVASCULAR DISORDER
     Dosage: 35 MG, UNK
     Route: 048
     Dates: start: 20121018
  6. VASTAREL MR [Concomitant]
     Indication: CORONARY ARTERY DISEASE
  7. GLIFOR [Concomitant]
     Indication: DIABETES MELLITUS
     Dosage: 850 MG,
     Route: 048
     Dates: start: 20130614
  8. ZESTAT [Concomitant]
     Indication: DEPRESSION
     Dosage: 15 MG, UNK
     Route: 048
     Dates: start: 20120710

REACTIONS (1)
  - Angina unstable [Recovered/Resolved]
